FAERS Safety Report 15809033 (Version 2)
Quarter: 2019Q2

REPORT INFORMATION
  Report Type: Not Available
  Country: US (occurrence: US)
  Receive Date: 20190110
  Receipt Date: 20190528
  Transmission Date: 20190711
  Serious: Yes (Death, Other)
  Sender: FDA-Public Use
  Company Number: US-NEUROCRINE BIOSCIENCES INC.-2019NBI00076

PATIENT
  Age: 91 Year
  Sex: Female

DRUGS (14)
  1. ONDANSETRON [Concomitant]
     Active Substance: ONDANSETRON
     Indication: NAUSEA
     Dosage: 1 TAB EVERY 8 HOURS AS NEEDED
     Route: 048
  2. CARDIZEM [Concomitant]
     Active Substance: DILTIAZEM HYDROCHLORIDE
     Dates: start: 20171117
  3. POTASSIUM CHLORIDE. [Concomitant]
     Active Substance: POTASSIUM CHLORIDE
     Dosage: 20 MEQ/15 ML; 15 ML DAILY
     Route: 048
  4. BACLOFEN. [Concomitant]
     Active Substance: BACLOFEN
     Dates: start: 20180925
  5. ESZOPICLONE. [Concomitant]
     Active Substance: ESZOPICLONE
     Dosage: HALF TABLET AT BEDTIME
  6. CRANBERRY. [Concomitant]
     Active Substance: CRANBERRY
     Route: 048
  7. INGREZZA [Suspect]
     Active Substance: VALBENAZINE
     Indication: TARDIVE DYSKINESIA
     Route: 048
     Dates: start: 20180104
  8. CLONAZEPAM. [Concomitant]
     Active Substance: CLONAZEPAM
  9. VALSARTAN. [Concomitant]
     Active Substance: VALSARTAN
     Route: 048
  10. FLUOXETINE [Concomitant]
     Active Substance: FLUOXETINE HYDROCHLORIDE
     Route: 048
  11. VALSARTAN. [Concomitant]
     Active Substance: VALSARTAN
     Route: 048
  12. VITAMIN D [Concomitant]
     Active Substance: VITAMIN D NOS
     Route: 048
  13. LASIX [Concomitant]
     Active Substance: FUROSEMIDE
     Dates: start: 20180802
  14. CALCIUM LACTATE [Concomitant]
     Active Substance: CALCIUM LACTATE
     Route: 048

REACTIONS (3)
  - Clostridium difficile colitis [Unknown]
  - Urinary tract infection [Unknown]
  - Lung carcinoma cell type unspecified stage I [Fatal]

NARRATIVE: CASE EVENT DATE: 201803
